FAERS Safety Report 4996057-X (Version None)
Quarter: 2006Q1

REPORT INFORMATION
  Report Type: 
  Country: None (occurrence: None)
  Receive Date: 20060315
  Receipt Date: 20051213
  Transmission Date: 20060701
  Serious: Yes (Other)
  Sender: FDA-Public Use
  Company Number: 428732

PATIENT
  Age: 85 Year
  Sex: Female

DRUGS (1)
  1. BONIVA [Suspect]
     Dates: start: 20050815

REACTIONS (4)
  - ARTHRALGIA [None]
  - FAECES PALE [None]
  - PAIN IN EXTREMITY [None]
  - SHOULDER PAIN [None]
